FAERS Safety Report 11541754 (Version 5)
Quarter: 2019Q1

REPORT INFORMATION
  Report Type: Report from Study
  Country: AR (occurrence: AR)
  Receive Date: 20150923
  Receipt Date: 20190320
  Transmission Date: 20190417
  Serious: Yes (Other)
  Sender: FDA-Public Use
  Company Number: PHHY2015AR080333

PATIENT
  Sex: Female

DRUGS (3)
  1. METFORMIN [Concomitant]
     Active Substance: METFORMIN HYDROCHLORIDE
     Indication: PRODUCT USED FOR UNKNOWN INDICATION
     Dosage: 2000 MG, QD
     Route: 065
  2. EXFORGE [Suspect]
     Active Substance: AMLODIPINE BESYLATE\VALSARTAN
     Indication: HYPERTENSION
     Dosage: 1 DF (AMLODIPINE 5MG, HYDROCHLOROTHIAZIDE 12.5 MG, VALSARTAN 160MG), BID ( 5 YAERS AGO)
     Route: 065
  3. GALVUS [Suspect]
     Active Substance: VILDAGLIPTIN
     Indication: PRODUCT USED FOR UNKNOWN INDICATION
     Dosage: 50 MG, QD
     Route: 065

REACTIONS (19)
  - Arrhythmia [Unknown]
  - Malaise [Not Recovered/Not Resolved]
  - Peripheral swelling [Not Recovered/Not Resolved]
  - Asphyxia [Not Recovered/Not Resolved]
  - Pain [Unknown]
  - Hypokinesia [Unknown]
  - Bone pain [Not Recovered/Not Resolved]
  - Swelling [Not Recovered/Not Resolved]
  - Musculoskeletal discomfort [Unknown]
  - Headache [Unknown]
  - Product dispensing error [Unknown]
  - Inappropriate schedule of product administration [Not Recovered/Not Resolved]
  - Erythema [Not Recovered/Not Resolved]
  - Fear [Unknown]
  - Gait disturbance [Unknown]
  - Blood glucose decreased [Not Recovered/Not Resolved]
  - Blood pressure increased [Unknown]
  - Nervousness [Not Recovered/Not Resolved]
  - Weight increased [Recovering/Resolving]
